FAERS Safety Report 5646360-5 (Version None)
Quarter: 2008Q1

REPORT INFORMATION
  Report Type: 
  Country: None (occurrence: None)
  Receive Date: 20080303
  Receipt Date: 20080218
  Transmission Date: 20080703
  Serious: Yes (Hospitalization, Other)
  Sender: FDA-Public Use
  Company Number: US-ELI_LILLY_AND_COMPANY-US_000847252

PATIENT
  Sex: Male
  Weight: 90.909 kg

DRUGS (8)
  1. ZYPREXA [Suspect]
     Indication: SCHIZOPHRENIA
     Dosage: 20 MG, DAILY (1/D)
     Route: 048
     Dates: start: 20000501, end: 20010701
  2. ZYPREXA [Suspect]
     Dosage: 30 MG, UNK
     Dates: start: 20070901, end: 20071101
  3. ZYPREXA [Suspect]
     Dosage: 40 MG, UNK
     Dates: start: 20071101
  4. RISPERDAL [Concomitant]
     Dosage: 7 MG, DAILY (1/D)
     Route: 048
     Dates: start: 19950101
  5. PAXIL [Concomitant]
     Dosage: 30 MG, DAILY (1/D)
     Route: 048
     Dates: start: 20000501
  6. ABILIFY [Concomitant]
     Indication: SCHIZOAFFECTIVE DISORDER
  7. LAMICTAL [Concomitant]
     Dates: start: 20070901
  8. TRILEPTAL [Concomitant]
     Dates: start: 20070901

REACTIONS (17)
  - ABDOMINAL DISTENSION [None]
  - ACTIVITIES OF DAILY LIVING IMPAIRED [None]
  - ARTHRALGIA [None]
  - BREAST DISORDER MALE [None]
  - CENTRAL OBESITY [None]
  - DECREASED ACTIVITY [None]
  - FATIGUE [None]
  - GYNAECOMASTIA [None]
  - HOSPITALISATION [None]
  - INCREASED APPETITE [None]
  - MOVEMENT DISORDER [None]
  - OVERDOSE [None]
  - PAIN IN EXTREMITY [None]
  - RESPIRATORY DISORDER [None]
  - TIC [None]
  - WEIGHT DECREASED [None]
  - WEIGHT INCREASED [None]
